FAERS Safety Report 23260338 (Version 3)
Quarter: 2023Q4

REPORT INFORMATION
  Report Type: Spontaneous
  Country: US (occurrence: US)
  Receive Date: 20231204
  Receipt Date: 20231218
  Transmission Date: 20240109
  Serious: Yes (Other)
  Sender: FDA-Public Use
  Company Number: US-AMGEN-USASP2023215126

PATIENT
  Sex: Male

DRUGS (2)
  1. MVASI [Suspect]
     Active Substance: BEVACIZUMAB-AWWB
     Indication: Product used for unknown indication
     Dosage: DOSE ORDERED: 1300 MG (DOSE REQUESTED: 3X400MG AND 1X100MG)
     Route: 065
  2. MVASI [Suspect]
     Active Substance: BEVACIZUMAB-AWWB
     Dosage: DOSE ORDERED: 1300 MG (DOSE REQUESTED: 3X400MG AND 1X100MG)
     Route: 065

REACTIONS (1)
  - Metastatic neoplasm [Unknown]
